FAERS Safety Report 17475998 (Version 2)
Quarter: 2021Q4

REPORT INFORMATION
  Report Type: Spontaneous
  Country: FR (occurrence: FR)
  Receive Date: 20200228
  Receipt Date: 20211201
  Transmission Date: 20220303
  Serious: Yes (Other)
  Sender: FDA-Public Use
  Company Number: FR-JAZZ-2019-FR-016891

PATIENT

DRUGS (8)
  1. VYXEOS [Suspect]
     Active Substance: CYTARABINE\DAUNORUBICIN
     Indication: Acute myeloid leukaemia
     Dosage: 150 INTERNATIONAL UNIT
     Route: 042
     Dates: start: 20190627
  2. VYXEOS [Suspect]
     Active Substance: CYTARABINE\DAUNORUBICIN
     Dosage: 100 UI/M2, DAY 1, 3, 5
     Route: 042
     Dates: start: 20190627
  3. VYXEOS [Suspect]
     Active Substance: CYTARABINE\DAUNORUBICIN
     Dosage: 65 UI/M2, DAY 1, 3
     Dates: start: 20190801
  4. ONDANSETRON [Concomitant]
     Active Substance: ONDANSETRON
     Indication: Nausea
     Dosage: UNK
     Route: 048
     Dates: start: 20190627
  5. ALIZAPRIDE HYDROCHLORIDE [Concomitant]
     Active Substance: ALIZAPRIDE HYDROCHLORIDE
     Indication: Nausea
     Dosage: UNK
     Route: 042
     Dates: start: 20190627
  6. OLANZAPINE [Concomitant]
     Active Substance: OLANZAPINE
     Indication: Nausea
     Route: 048
  7. PIPERACILLIN SODIUM\TAZOBACTAM SODIUM [Concomitant]
     Active Substance: PIPERACILLIN SODIUM\TAZOBACTAM SODIUM
     Indication: Pyrexia
     Dosage: UNK
     Dates: start: 20190630
  8. ALBUTEROL SULFATE [Concomitant]
     Active Substance: ALBUTEROL SULFATE
     Indication: Asthma
     Dosage: UNK

REACTIONS (1)
  - Toxic skin eruption [Recovered/Resolved]

NARRATIVE: CASE EVENT DATE: 20190701
